FAERS Safety Report 5453726-5 (Version None)
Quarter: 2007Q3

REPORT INFORMATION
  Report Type: 
  Country: None (occurrence: None)
  Receive Date: 20070917
  Receipt Date: 20070907
  Transmission Date: 20080115
  Serious: Yes (Other)
  Sender: FDA-Public Use
  Company Number: CH-JNJFOC-20070901642

PATIENT
  Sex: Male

DRUGS (9)
  1. REMICADE [Suspect]
  2. REMICADE [Suspect]
  3. REMICADE [Suspect]
  4. REMICADE [Suspect]
  5. REMICADE [Suspect]
     Indication: EAR DISORDER
  6. REMICADE [Suspect]
     Indication: HYPOACUSIS
  7. REMICADE [Suspect]
     Indication: OCULAR NEOPLASM
  8. COVERSUM COMBI [Concomitant]
  9. VITARUBIN [Concomitant]
     Dosage: ALL 3 MONTHS.

REACTIONS (2)
  - BONE MARROW DISORDER [None]
  - LEUKOPENIA [None]
